FAERS Safety Report 8878434 (Version 1)
Quarter: 2012Q4

REPORT INFORMATION
  Report Type: Report from Study
  Country: CA (occurrence: CA)
  Receive Date: 20121030
  Receipt Date: 20121030
  Transmission Date: 20130627
  Serious: Yes (Other)
  Sender: FDA-Public Use
  Company Number: CA-JNJFOC-20121009443

PATIENT
  Age: 34 Year
  Sex: Female
  Weight: 84 kg

DRUGS (3)
  1. REMICADE [Suspect]
     Indication: COLITIS ULCERATIVE
     Route: 042
     Dates: start: 20120217
  2. VALPROIC ACID [Concomitant]
     Route: 048
     Dates: start: 201205
  3. AZATHIOPRINE [Concomitant]
     Route: 048
     Dates: start: 201110

REACTIONS (6)
  - Thyroid function test abnormal [Unknown]
  - Chills [Recovered/Resolved]
  - Lymph node pain [Recovered/Resolved]
  - Cough [Recovered/Resolved]
  - Pain [Recovered/Resolved]
  - Body temperature increased [Recovered/Resolved]
